FAERS Safety Report 17799596 (Version 1)
Quarter: 2020Q2

REPORT INFORMATION
  Report Type: Spontaneous
  Country: MY (occurrence: NL)
  Receive Date: 20200518
  Receipt Date: 20200518
  Transmission Date: 20200714
  Serious: Yes (Hospitalization, Other)
  Sender: FDA-Public Use
  Company Number: NL-AKRON, INC.-2083903

PATIENT
  Age: 62 Year
  Sex: Female

DRUGS (1)
  1. LIDOCAINE HCL ORAL TOPICAL SOLUTION [Suspect]
     Active Substance: LIDOCAINE HYDROCHLORIDE
     Indication: DENTAL CARE

REACTIONS (10)
  - Syncope [Recovered/Resolved]
  - Dizziness [Recovered/Resolved]
  - Metabolic acidosis [Recovered/Resolved]
  - Paraesthesia [Recovered/Resolved]
  - Hyperkalaemia [Recovered/Resolved]
  - Toxicity to various agents [Recovered/Resolved]
  - Bradycardia [Recovered/Resolved]
  - Hypoaesthesia oral [Recovered/Resolved]
  - Hyperhidrosis [Recovered/Resolved]
  - Hypotension [Recovered/Resolved]
